FAERS Safety Report 7124993-7 (Version None)
Quarter: 2010Q4

REPORT INFORMATION
  Report Type: 
  Country: None (occurrence: None)
  Receive Date: 20101123
  Receipt Date: 20101123
  Transmission Date: 20110411
  Serious: Yes (Other)
  Sender: FDA-Public Use
  Company Number: None

PATIENT
  Sex: Male

DRUGS (1)
  1. XELODA [Suspect]
     Dosage: 4 TABLETS TWICE A DAY 14 DAYS ON 7 DAYS OFF BY MOUTH
     Route: 048
     Dates: start: 20100901, end: 20101020

REACTIONS (2)
  - NEUROPATHY PERIPHERAL [None]
  - SKIN EXFOLIATION [None]
